FAERS Safety Report 10152164 (Version 2)
Quarter: 2014Q2

REPORT INFORMATION
  Report Type: Spontaneous
  Country: ES (occurrence: None)
  Receive Date: 20140501
  Receipt Date: 20140523
  Transmission Date: 20141212
  Serious: Yes (Hospitalization)
  Sender: FDA-Public Use
  Company Number: ACET20140008

PATIENT
  Age: 38 Year
  Sex: Male

DRUGS (2)
  1. ACETAMINOPHEN [Suspect]
     Indication: INTENTIONAL OVERDOSE
     Dosage: 40000MG, AT ONCE, ORAL
     Route: 048
  2. CARBON MONOXIDE [Suspect]
     Route: 055

REACTIONS (14)
  - Rhabdomyolysis [None]
  - Intentional overdose [None]
  - Exposure via inhalation [None]
  - Chest pain [None]
  - Toxicity to various agents [None]
  - Confusional state [None]
  - Abdominal pain upper [None]
  - Nausea [None]
  - Hepatotoxicity [None]
  - Hepatitis [None]
  - Renal tubular disorder [None]
  - Proteinuria [None]
  - Drug-induced liver injury [None]
  - Liver injury [None]
